FAERS Safety Report 7794413-8 (Version None)
Quarter: 2011Q4

REPORT INFORMATION
  Report Type: 
  Country: None (occurrence: None)
  Receive Date: 20111004
  Receipt Date: 20111004
  Transmission Date: 20120403
  Serious: Yes (Other)
  Sender: FDA-Public Use
  Company Number: None

PATIENT
  Age: 27 Year
  Sex: Female
  Weight: 63.502 kg

DRUGS (1)
  1. AMITRIPTYLINE HCL [Suspect]
     Indication: MIGRAINE
     Dosage: 1 PILL
     Route: 048

REACTIONS (4)
  - SCAR [None]
  - SKIN HAEMORRHAGE [None]
  - SKIN LESION [None]
  - PRODUCT SUBSTITUTION ISSUE [None]
